FAERS Safety Report 4969091-3 (Version None)
Quarter: 2006Q2

REPORT INFORMATION
  Report Type: 
  Country: None (occurrence: None)
  Receive Date: 20060405
  Receipt Date: 20060324
  Transmission Date: 20061013
  Serious: Yes (Hospitalization)
  Sender: FDA-Public Use
  Company Number: 223497

PATIENT
  Age: 58 Year
  Sex: Male
  Weight: 72.5 kg

DRUGS (3)
  1. AVASTIN [Suspect]
     Indication: PANCREATIC CARCINOMA
     Dosage: 720 MG, DAYS 1 + 15, INTRAVENOUS
     Route: 042
     Dates: start: 20060202
  2. GEMCITABINE (GECMCITABINE HYDROCHLORIDE) [Suspect]
     Indication: PANCREATIC CARCINOMA
     Dosage: 1900 MG, DAYS 1 + 15, INTRAVENOUS
     Route: 042
     Dates: start: 20060202
  3. OXALIPLATIN (OXALIPLATIN) [Suspect]
     Indication: PANCREATIC CARCINOMA
     Dosage: 190 MG, INTRAVENOUS
     Route: 042
     Dates: start: 20060203

REACTIONS (3)
  - HALLUCINATION [None]
  - INCOHERENT [None]
  - PNEUMONIA [None]
